FAERS Safety Report 4768507-5 (Version None)
Quarter: 2005Q3

REPORT INFORMATION
  Report Type: 
  Country: None (occurrence: None)
  Receive Date: 20050914
  Receipt Date: 20050731
  Transmission Date: 20060218
  Serious: Yes (Other)
  Sender: FDA-Public Use
  Company Number: CA-AMGEN-US145752

PATIENT
  Sex: Female
  Weight: 64.6 kg

DRUGS (17)
  1. ARANESP [Suspect]
     Indication: RENAL TRANSPLANT
     Route: 058
     Dates: start: 20041126, end: 20050704
  2. AZATHIOPRINE [Suspect]
  3. CYCLOSPORINE [Suspect]
  4. EZETIMIBE [Suspect]
  5. SORIATANE [Suspect]
  6. ASPIRIN [Concomitant]
  7. PREDNISONE [Concomitant]
  8. ATORVASTATIN [Concomitant]
  9. METOPROLOL [Concomitant]
  10. DILTIAZEM [Concomitant]
  11. CALCIUM GLUCONATE [Concomitant]
  12. POTASSIUM [Concomitant]
  13. CALCITRIOL [Concomitant]
  14. FOSAMAX [Concomitant]
  15. RANITIDINE [Concomitant]
  16. L-THYROXIN [Concomitant]
  17. WARFARIN [Concomitant]

REACTIONS (3)
  - APLASIA PURE RED CELL [None]
  - EOSINOPHILIA [None]
  - MYELODYSPLASTIC SYNDROME [None]
